FAERS Safety Report 4462166-7 (Version None)
Quarter: 2004Q3

REPORT INFORMATION
  Report Type: 
  Country: None (occurrence: None)
  Receive Date: 20040927
  Receipt Date: 20040927
  Transmission Date: 20050211
  Serious: Yes (Life-Threatening)
  Sender: FDA-Public Use
  Company Number: None

PATIENT
  Sex: Male

DRUGS (1)
  1. HEPARIN [Suspect]
     Indication: PROPHYLAXIS
     Dosage: PROTOCOL INTRAVENOUS
     Route: 042
     Dates: start: 20040419, end: 20040422

REACTIONS (1)
  - HEPARIN-INDUCED THROMBOCYTOPENIA [None]
